FAERS Safety Report 8430607-6 (Version None)
Quarter: 2012Q2

REPORT INFORMATION
  Report Type: 
  Country: None (occurrence: None)
  Receive Date: 20120612
  Receipt Date: 20120605
  Transmission Date: 20120825
  Serious: Yes (Other)
  Sender: FDA-Public Use
  Company Number: CA-B.I. PHARMACEUTICALS,INC./RIDGEFIELD-2012-CN-01137CN

PATIENT
  Sex: Male

DRUGS (2)
  1. PRADAXA [Suspect]
     Dates: end: 20120501
  2. PRADAXA [Suspect]
     Indication: HEART RATE IRREGULAR
     Dosage: 300 MG
     Dates: start: 20110401

REACTIONS (3)
  - HAEMATOCHEZIA [None]
  - RENAL FAILURE [None]
  - CONDITION AGGRAVATED [None]
